FAERS Safety Report 6426145-2 (Version None)
Quarter: 2009Q4

REPORT INFORMATION
  Report Type: 
  Country: None (occurrence: None)
  Receive Date: 20091023
  Receipt Date: 20091012
  Transmission Date: 20100525
  Serious: Yes (Other)
  Sender: FDA-Public Use
  Company Number: B0598535A

PATIENT
  Age: 46 Year
  Sex: Female

DRUGS (10)
  1. LAMIVUDINE [Suspect]
     Indication: HIV INFECTION
  2. ZIDOVUDINE [Concomitant]
     Indication: HIV INFECTION
  3. DIDANOSINE [Suspect]
     Indication: HIV INFECTION
  4. STAVUDINE [Suspect]
     Indication: HIV INFECTION
  5. NEVIRAPINE [Suspect]
     Indication: HIV INFECTION
  6. EFAVIRENZ (FORMULATION UNKNOWN) (EFAVIRAZENZ) [Suspect]
     Indication: HIV INFECTION
  7. LOPINAVIR (FORMULATION UNKNOWN) (LOPINAVIR) [Suspect]
     Indication: HIV INFECTION
  8. NELFINAVIR MESYLATE (FORMULATION UNKNOWN) (NELFINAVIR) [Suspect]
     Indication: HIV INFECTION
  9. INDINIVIR SULFATE [Suspect]
     Indication: HIV INFECTION
  10. RITONAVIR [Suspect]
     Indication: HIV INFECTION

REACTIONS (6)
  - ASCITES [None]
  - HEPATIC FIBROSIS [None]
  - PORTAL HYPERTENSION [None]
  - PORTAL HYPERTENSIVE GASTROPATHY [None]
  - SPLENOMEGALY [None]
  - VARICES OESOPHAGEAL [None]
